FAERS Safety Report 8953610 (Version 2)
Quarter: 2013Q1

REPORT INFORMATION
  Report Type: Spontaneous
  Country: GB (occurrence: GB)
  Receive Date: 20121206
  Receipt Date: 20130117
  Transmission Date: 20140127
  Serious: Yes (Other)
  Sender: FDA-Public Use
  Company Number: GB-PFIZER INC-2012305986

PATIENT
  Age: 65 Year
  Sex: 0

DRUGS (1)
  1. INSPRA [Suspect]
     Route: 048

REACTIONS (1)
  - Dysphagia [Unknown]
